FAERS Safety Report 9893520 (Version 1)
Quarter: 2014Q1

REPORT INFORMATION
  Report Type: Spontaneous
  Country: US (occurrence: US)
  Receive Date: 20140213
  Receipt Date: 20140213
  Transmission Date: 20141002
  Serious: Yes (Other)
  Sender: FDA-Public Use
  Company Number: US-NOVOPROD-399805

PATIENT
  Age: 49 Year
  Sex: Female
  Weight: 102.95 kg

DRUGS (1)
  1. VICTOZA [Suspect]
     Indication: TYPE 2 DIABETES MELLITUS
     Dosage: 1.8 MG, QD
     Route: 058
     Dates: start: 2011, end: 201309

REACTIONS (2)
  - Parathyroid tumour benign [Recovered/Resolved]
  - Benign neoplasm of thyroid gland [Recovered/Resolved]
